FAERS Safety Report 23453267 (Version 1)
Quarter: 2024Q1

REPORT INFORMATION
  Report Type: Spontaneous
  Country: CN (occurrence: CN)
  Receive Date: 20240129
  Receipt Date: 20240129
  Transmission Date: 20240409
  Serious: Yes (Other)
  Sender: FDA-Public Use
  Company Number: CN-PFIZER INC-PV202400011713

PATIENT
  Age: 84 Year
  Sex: Female
  Weight: 45 kg

DRUGS (2)
  1. TIGECYCLINE [Suspect]
     Active Substance: TIGECYCLINE
     Indication: Pneumonia acinetobacter
     Dosage: 100 MG, 2X/DAY
     Route: 041
     Dates: start: 20231225, end: 20231228
  2. SODIUM CHLORIDE [Concomitant]
     Active Substance: SODIUM CHLORIDE
     Indication: Acinetobacter infection
     Dosage: 100 ML, 2X/DAY
     Route: 041
     Dates: start: 20231225, end: 20231228

REACTIONS (3)
  - Diarrhoea [Recovering/Resolving]
  - Dysbiosis [Unknown]
  - Off label use [Unknown]

NARRATIVE: CASE EVENT DATE: 20231225
